FAERS Safety Report 6276520-4 (Version None)
Quarter: 2009Q3

REPORT INFORMATION
  Report Type: 
  Country: None (occurrence: None)
  Receive Date: 20090720
  Receipt Date: 20090421
  Transmission Date: 20100115
  Serious: Yes (Death, Other)
  Sender: FDA-Public Use
  Company Number: USA-2009-0037487

PATIENT
  Age: 17 Year
  Sex: Male
  Weight: 82.1 kg

DRUGS (2)
  1. MORPHINE SULFATE [Suspect]
     Indication: DRUG ABUSE
  2. MARIJUANA (CANNABIS SATIVA) [Suspect]
     Indication: DRUG ABUSE

REACTIONS (2)
  - ACCIDENTAL OVERDOSE [None]
  - SUBSTANCE ABUSE [None]
